FAERS Safety Report 6782149-1 (Version None)
Quarter: 2010Q2

REPORT INFORMATION
  Report Type: 
  Country: None (occurrence: None)
  Receive Date: 20100621
  Receipt Date: 20100609
  Transmission Date: 20101027
  Serious: Yes (Hospitalization)
  Sender: FDA-Public Use
  Company Number: FR-PFIZER INC-2010071973

PATIENT
  Age: 56 Year
  Sex: Male

DRUGS (5)
  1. ADRIBLASTINE [Suspect]
     Dosage: 50 MG, CYCLIC
     Route: 042
     Dates: start: 20100107, end: 20100415
  2. BLEOMYCIN [Suspect]
     Dosage: 20 MG, CYCLIC
     Route: 042
     Dates: start: 20100107, end: 20100415
  3. VELBE [Suspect]
     Dosage: 10 MG, CYCLIC
     Route: 042
     Dates: start: 20100107, end: 20100415
  4. DETICENE [Suspect]
     Dosage: 700 MG, CYCLIC
     Route: 042
     Dates: start: 20100107, end: 20100415
  5. DEXAMETHASONE MERCK [Suspect]
     Dosage: 4 MG, CYCLIC
     Route: 042
     Dates: start: 20100107, end: 20100415

REACTIONS (1)
  - PULMONARY FIBROSIS [None]
